FAERS Safety Report 10185931 (Version 1)
Quarter: 2014Q2

REPORT INFORMATION
  Report Type: Spontaneous
  Country: US (occurrence: US)
  Receive Date: 20140521
  Receipt Date: 20140521
  Transmission Date: 20141212
  Serious: No
  Sender: FDA-Public Use
  Company Number: US-TEVA-481839USA

PATIENT
  Sex: Female
  Weight: 65.83 kg

DRUGS (9)
  1. NUVIGIL [Suspect]
     Indication: BIPOLAR DISORDER
  2. NUVIGIL [Suspect]
     Indication: ANXIETY
  3. NUVIGIL [Suspect]
     Indication: DEPRESSION
  4. NUVIGIL [Suspect]
     Indication: SOCIAL PHOBIA
  5. BUSPIRONE [Concomitant]
     Indication: AFFECTIVE DISORDER
  6. ABILIFY [Concomitant]
     Indication: PSYCHOTIC DISORDER
  7. AMISULPRIDE [Concomitant]
  8. KLONOPIN [Concomitant]
     Indication: ANXIETY
  9. CYMBALTA [Concomitant]
     Indication: DEPRESSION

REACTIONS (3)
  - Drug administration error [Not Recovered/Not Resolved]
  - Fatigue [Not Recovered/Not Resolved]
  - Off label use [Unknown]
